FAERS Safety Report 5538112-1 (Version None)
Quarter: 2007Q4

REPORT INFORMATION
  Report Type: 
  Country: None (occurrence: None)
  Receive Date: 20071207
  Receipt Date: 20071126
  Transmission Date: 20080405
  Serious: Yes (Other)
  Sender: FDA-Public Use
  Company Number: US-PFIZER INC-2007100659

PATIENT

DRUGS (1)
  1. CHANTIX [Suspect]

REACTIONS (1)
  - CEREBRAL HAEMORRHAGE [None]
